FAERS Safety Report 7497048-X (Version None)
Quarter: 2011Q2

REPORT INFORMATION
  Report Type: 
  Country: None (occurrence: None)
  Receive Date: 20110523
  Receipt Date: 20110520
  Transmission Date: 20111010
  Serious: Yes (Other)
  Sender: FDA-Public Use
  Company Number: US-GENZYME-CERD-1000027

PATIENT
  Sex: Female

DRUGS (2)
  1. CEREDASE [Suspect]
     Dosage: 2400 U, Q2W
     Route: 042
     Dates: start: 20071201
  2. CEREDASE [Suspect]
     Indication: GAUCHER'S DISEASE
     Dosage: 800 U, QW
     Route: 042
     Dates: end: 20110408

REACTIONS (1)
  - MEDICATION ERROR [None]
